FAERS Safety Report 23736418 (Version 1)
Quarter: 2024Q2

REPORT INFORMATION
  Report Type: Report from Study
  Country: US (occurrence: None)
  Receive Date: 20240412
  Receipt Date: 20240412
  Transmission Date: 20240716
  Serious: Yes (Other)
  Sender: FDA-Public Use
  Company Number: 2024A083775

PATIENT
  Sex: Male

DRUGS (1)
  1. TEZEPELUMAB [Suspect]
     Active Substance: TEZEPELUMAB

REACTIONS (5)
  - Oxygen saturation decreased [Unknown]
  - Respiratory rate decreased [Unknown]
  - Illness [Unknown]
  - Dyspnoea [Unknown]
  - Weight decreased [Unknown]
